FAERS Safety Report 9676903 (Version 2)
Quarter: 2013Q4

REPORT INFORMATION
  Report Type: Spontaneous
  Country: CO (occurrence: CO)
  Receive Date: 20131107
  Receipt Date: 20131107
  Transmission Date: 20140711
  Serious: Yes (Other)
  Sender: FDA-Public Use
  Company Number: CO-AMGEN-COLSP2013024626

PATIENT
  Age: 52 Year
  Sex: Male

DRUGS (11)
  1. ENBREL [Suspect]
     Indication: RHEUMATOID ARTHRITIS
     Dosage: 50 MG, WEEKLY
     Route: 058
     Dates: start: 201303, end: 20130326
  2. TRAMADOL [Concomitant]
     Indication: RHEUMATOID ARTHRITIS
     Dosage: UNK
     Route: 065
     Dates: start: 2011
  3. ARAVA [Concomitant]
     Indication: RHEUMATOID ARTHRITIS
     Dosage: 20 MG, 1X/DAY
     Route: 048
     Dates: start: 2011
  4. METHOTREXATE [Concomitant]
     Indication: RHEUMATOID ARTHRITIS
     Dosage: 8 TABLETS OF 2.5MG, WEEKLY
     Route: 048
     Dates: start: 2011
  5. LOSARTAN [Concomitant]
     Indication: HYPERTENSION
     Dosage: 50 MG, 2X/DAY (MORNING AND NIGHT)
     Route: 048
     Dates: start: 2011
  6. PREDNISOLON                        /00016201/ [Concomitant]
     Indication: RHEUMATOID ARTHRITIS
     Dosage: 5 MG, 1X/DAY
     Route: 048
     Dates: start: 2011
  7. FOLIC ACID [Concomitant]
     Indication: RHEUMATOID ARTHRITIS
     Dosage: 1 MG, 1X/DAY
     Route: 048
     Dates: start: 2011
  8. ISONIAZID [Concomitant]
     Indication: TUBERCULIN TEST POSITIVE
     Dosage: 100 MG, 3X/DAY
     Route: 048
     Dates: start: 201301
  9. AMLODIPINE [Concomitant]
     Indication: HYPERTENSION
     Dosage: 5 MG, 1X/DAY AT NIGHT
     Route: 048
     Dates: start: 201303
  10. LOVASTATIN [Concomitant]
     Dosage: 20 MG, 2X/DAY
     Route: 048
     Dates: start: 201303
  11. TRAZODONE [Concomitant]
     Indication: SLEEP DISORDER
     Dosage: 50 MG, 1X/DAY
     Route: 048
     Dates: start: 201303

REACTIONS (3)
  - Abdominal pain upper [Recovered/Resolved]
  - Ocular hyperaemia [Not Recovered/Not Resolved]
  - Conjunctivitis [Not Recovered/Not Resolved]
